FAERS Safety Report 6093965-6 (Version None)
Quarter: 2009Q1

REPORT INFORMATION
  Report Type: 
  Country: None (occurrence: None)
  Receive Date: 20090226
  Receipt Date: 20090220
  Transmission Date: 20090719
  Serious: Yes (Hospitalization)
  Sender: FDA-Public Use
  Company Number: A0770327A

PATIENT
  Age: 51 Year
  Sex: Male
  Weight: 104.5 kg

DRUGS (6)
  1. AVANDIA [Suspect]
     Indication: DIABETES MELLITUS
     Dosage: 8MG PER DAY
     Route: 048
     Dates: start: 20021119, end: 20070601
  2. GLUCOPHAGE [Concomitant]
  3. PREVACID [Concomitant]
  4. PROTONIX [Concomitant]
  5. HYTRIN [Concomitant]
  6. AVAPRO [Concomitant]

REACTIONS (2)
  - CORONARY ARTERY DISEASE [None]
  - MYOCARDIAL INFARCTION [None]
